FAERS Safety Report 5188882-X (Version None)
Quarter: 2006Q4

REPORT INFORMATION
  Report Type: 
  Country: None (occurrence: None)
  Receive Date: 20061221
  Receipt Date: 20061215
  Transmission Date: 20070319
  Serious: Yes (Other)
  Sender: FDA-Public Use
  Company Number: US-BOEHRINGER INGELHEIM PHARMACEUTICALS, INC.-2006-DE-06706GD

PATIENT

DRUGS (2)
  1. TIPRANAVIR + RITONAVIR CO-ADMIN [Suspect]
     Indication: DRUG LEVEL
     Dosage: 1000 MG TIPRANAVIR + 400 MG RITONAVIR
  2. BRECANAVIR [Suspect]
     Indication: DRUG LEVEL

REACTIONS (2)
  - DRUG INTERACTION [None]
  - TRANSAMINASES INCREASED [None]
